FAERS Safety Report 17747759 (Version 2)
Quarter: 2020Q2

REPORT INFORMATION
  Report Type: Spontaneous
  Country: US (occurrence: US)
  Receive Date: 20200505
  Receipt Date: 20200520
  Transmission Date: 20200714
  Serious: No
  Sender: FDA-Public Use
  Company Number: TCL 20-029 - APAP

PATIENT
  Age: 63 Year
  Sex: Female
  Weight: 95.46 kg

DRUGS (1)
  1. ACETAMINOPHEN 250MG/ASPIRIN 250MG/CAFFEINE65 MG TABLETS [Suspect]
     Active Substance: ACETAMINOPHEN\ASPIRIN\CAFFEINE
     Route: 048

REACTIONS (1)
  - Chest pain [None]
